FAERS Safety Report 8086356-X (Version None)
Quarter: 2012Q1

REPORT INFORMATION
  Report Type: 
  Country: None (occurrence: None)
  Receive Date: 20120128
  Receipt Date: 20110512
  Transmission Date: 20120608
  Serious: No
  Sender: FDA-Public Use
  Company Number: US-ABBOTT-11P-163-0724674-00

PATIENT
  Sex: Female

DRUGS (8)
  1. HUMIRA [Suspect]
     Dates: start: 20110301, end: 20110401
  2. UNKNOWN OINTMENT [Concomitant]
     Indication: PSORIASIS
  3. HUMIRA [Suspect]
     Indication: PSORIASIS
     Dosage: INITIAL DOSE
     Dates: start: 20110301, end: 20110301
  4. FUROSEMIDE [Interacting]
     Indication: PRODUCT USED FOR UNKNOWN INDICATION
  5. LEVOTHROID [Concomitant]
     Indication: HYPOTHYROIDISM
  6. INSULIN [Concomitant]
     Indication: DIABETES MELLITUS
  7. HUMIRA [Suspect]
     Indication: PSORIATIC ARTHROPATHY
     Dosage: ONCE
     Dates: start: 20110301, end: 20110301
  8. ASPIRIN [Concomitant]
     Indication: PRODUCT USED FOR UNKNOWN INDICATION

REACTIONS (3)
  - NAUSEA [None]
  - PARAESTHESIA [None]
  - PAIN OF SKIN [None]
